FAERS Safety Report 11348107 (Version 1)
Quarter: 2015Q3

REPORT INFORMATION
  Report Type: Spontaneous
  Country: US (occurrence: US)
  Receive Date: 20150803
  Receipt Date: 20150803
  Transmission Date: 20151125
  Serious: No
  Sender: FDA-Public Use
  Company Number: US-ELI_LILLY_AND_COMPANY-US201202005965

PATIENT
  Sex: Female

DRUGS (2)
  1. SERTRALINE [Concomitant]
     Active Substance: SERTRALINE HYDROCHLORIDE
  2. ZYPREXA [Suspect]
     Active Substance: OLANZAPINE

REACTIONS (3)
  - Pyrexia [Unknown]
  - Hyperhidrosis [Unknown]
  - Hepatic enzyme increased [Unknown]
